FAERS Safety Report 11069949 (Version 2)
Quarter: 2015Q2

REPORT INFORMATION
  Report Type: Spontaneous
  Country: JP (occurrence: JP)
  Receive Date: 20150427
  Receipt Date: 20150521
  Transmission Date: 20150821
  Serious: Yes (Hospitalization)
  Sender: FDA-Public Use
  Company Number: JP-PFIZER INC-2015126095

PATIENT
  Age: 77 Year
  Sex: Female

DRUGS (2)
  1. VANCOMYCIN [Suspect]
     Active Substance: VANCOMYCIN
     Indication: PNEUMONIA STAPHYLOCOCCAL
     Dosage: 0.75 G, DAILY
     Dates: start: 20130414, end: 20130427
  2. ZYVOX [Suspect]
     Active Substance: LINEZOLID
     Indication: PNEUMONIA STAPHYLOCOCCAL
     Dosage: 1.2 G, DAILY
     Route: 048
     Dates: start: 20130428

REACTIONS (2)
  - Renal impairment [Unknown]
  - Candida test positive [Unknown]
